FAERS Safety Report 8132921-0 (Version None)
Quarter: 2012Q1

REPORT INFORMATION
  Report Type: 
  Country: None (occurrence: None)
  Receive Date: 20120103
  Receipt Date: 20110923
  Transmission Date: 20120608
  Serious: No
  Sender: FDA-Public Use
  Company Number: AE-2011-001744

PATIENT
  Age: 46 Year
  Sex: Female

DRUGS (3)
  1. RIBAPAK (RIBAVIRIN) [Concomitant]
  2. INCIVEK [Suspect]
     Dates: start: 20110908
  3. PEGASYS [Concomitant]

REACTIONS (3)
  - DIARRHOEA [None]
  - DIZZINESS [None]
  - ANORECTAL DISCOMFORT [None]
